FAERS Safety Report 5097885-5 (Version None)
Quarter: 2006Q3

REPORT INFORMATION
  Report Type: 
  Country: None (occurrence: None)
  Receive Date: 20060905
  Receipt Date: 20060816
  Transmission Date: 20061208
  Serious: Yes (Disabling)
  Sender: FDA-Public Use
  Company Number: VNL_0178_2006

PATIENT
  Age: 75 Year
  Sex: Male

DRUGS (4)
  1. APO-GO [Suspect]
     Indication: PARKINSON'S DISEASE
     Dosage: 50 MG/12HRS INFUSION SC
     Route: 058
     Dates: start: 20050801
  2. CO-BENELDOPA [Concomitant]
  3. GLICAZIDE [Concomitant]
  4. COD LIVER OIL [Concomitant]

REACTIONS (4)
  - CONDITION AGGRAVATED [None]
  - INCONTINENCE [None]
  - SOMNOLENCE [None]
  - TREMOR [None]
